FAERS Safety Report 20939160 (Version 1)
Quarter: 2022Q2

REPORT INFORMATION
  Report Type: Spontaneous
  Country: CA (occurrence: CA)
  Receive Date: 20220609
  Receipt Date: 20220609
  Transmission Date: 20220720
  Serious: Yes (Other)
  Sender: FDA-Public Use
  Company Number: CA-PFIZER INC-202200809670

PATIENT
  Sex: Male

DRUGS (4)
  1. XELJANZ [Suspect]
     Active Substance: TOFACITINIB CITRATE
     Indication: Crohn^s disease
     Dosage: 10 MG 2 EVERY 10 WEEKS
     Route: 048
  2. HUMIRA [Suspect]
     Active Substance: ADALIMUMAB
     Dosage: UNK
     Route: 058
  3. REMICADE [Suspect]
     Active Substance: INFLIXIMAB
     Dosage: UNK
     Route: 065
  4. SIMPONI [Suspect]
     Active Substance: GOLIMUMAB
     Dosage: UNK
     Route: 065

REACTIONS (8)
  - Antibody test abnormal [Unknown]
  - Cardiac pacemaker insertion [Unknown]
  - Crohn^s disease [Unknown]
  - Glomerular filtration rate increased [Unknown]
  - Influenza like illness [Unknown]
  - Muscle spasms [Unknown]
  - Stomatitis [Unknown]
  - Off label use [Unknown]
